FAERS Safety Report 10211214 (Version 1)
Quarter: 2014Q2

REPORT INFORMATION
  Report Type: Spontaneous
  Country: US (occurrence: US)
  Receive Date: 20140602
  Receipt Date: 20140602
  Transmission Date: 20141212
  Serious: No
  Sender: FDA-Public Use
  Company Number: US-ASTRAZENECA-2014SE35830

PATIENT
  Age: 69 Year
  Sex: Female

DRUGS (3)
  1. CRESTOR [Suspect]
     Indication: BLOOD CHOLESTEROL INCREASED
     Route: 048
     Dates: start: 2014
  2. LIPITOR [Suspect]
     Route: 065
  3. VITAMINS [Concomitant]
     Route: 048

REACTIONS (2)
  - Muscle spasms [Unknown]
  - Intentional product misuse [Unknown]
